FAERS Safety Report 7512379-2 (Version None)
Quarter: 2011Q2

REPORT INFORMATION
  Report Type: 
  Country: None (occurrence: None)
  Receive Date: 20110520
  Receipt Date: 20110509
  Transmission Date: 20111010
  Serious: Yes (Hospitalization, Other)
  Sender: FDA-Public Use
  Company Number: 1000021014

PATIENT
  Sex: Male

DRUGS (3)
  1. ROFLUMILAST (ROFLUMILAST) (TABLETS) [Suspect]
     Indication: CHRONIC OBSTRUCTIVE PULMONARY DISEASE
     Dosage: 500 MCG  (500 MCG, 1 IN 1 D), ORAL
     Route: 048
     Dates: start: 20110101, end: 20110101
  2. SULFAMETHOXAZOLE AND TRIMETHOPRIM [Suspect]
     Indication: RESPIRATORY TRACT INFECTION BACTERIAL
     Dosage: ORAL
     Route: 048
     Dates: start: 20110101, end: 20110101
  3. SULFAMETHOXAZOLE AND TRIMETHOPRIM [Suspect]
     Indication: CRONOBACTER INFECTION
     Dosage: ORAL
     Route: 048
     Dates: start: 20110101, end: 20110101

REACTIONS (5)
  - HYPONATRAEMIA [None]
  - BRAIN OEDEMA [None]
  - CRONOBACTER INFECTION [None]
  - RESPIRATORY TRACT INFECTION BACTERIAL [None]
  - OEDEMA [None]
